FAERS Safety Report 5179907-6 (Version None)
Quarter: 2006Q4

REPORT INFORMATION
  Report Type: 
  Country: None (occurrence: None)
  Receive Date: 20061211
  Receipt Date: 20061127
  Transmission Date: 20070319
  Serious: Yes (Life-Threatening, Hospitalization, Other)
  Sender: FDA-Public Use
  Company Number: 2005075333

PATIENT
  Age: 16 Year
  Sex: Male

DRUGS (6)
  1. GEODON [Suspect]
     Indication: ACUTE PSYCHOSIS
     Dosage: 60 MG (20 MG, 3 IN 1 D), ORAL
     Route: 048
     Dates: start: 20050407, end: 20050409
  2. GEODON [Suspect]
     Indication: HALLUCINATION
     Dosage: 60 MG (20 MG, 3 IN 1 D), ORAL
     Route: 048
     Dates: start: 20050407, end: 20050409
  3. GEODON [Suspect]
     Indication: HOMICIDAL IDEATION
     Dosage: 60 MG (20 MG, 3 IN 1 D), ORAL
     Route: 048
     Dates: start: 20050407, end: 20050409
  4. GEODON [Suspect]
     Indication: MAJOR DEPRESSION
     Dosage: 60 MG (20 MG, 3 IN 1 D), ORAL
     Route: 048
     Dates: start: 20050407, end: 20050409
  5. GEODON [Suspect]
     Indication: SUICIDAL IDEATION
     Dosage: 60 MG (20 MG, 3 IN 1 D), ORAL
     Route: 048
     Dates: start: 20050407, end: 20050409
  6. LEXAPRO [Suspect]
     Indication: DEPRESSION
     Dates: start: 20050407, end: 20050409

REACTIONS (7)
  - ANAPHYLACTIC SHOCK [None]
  - CARDIO-RESPIRATORY ARREST [None]
  - DYSKINESIA [None]
  - EXTRAPYRAMIDAL DISORDER [None]
  - FALL [None]
  - OBSTRUCTIVE AIRWAYS DISORDER [None]
  - SWOLLEN TONGUE [None]
